FAERS Safety Report 9412392 (Version 1)
Quarter: 2013Q3

REPORT INFORMATION
  Report Type: Report from Study
  Country: ES (occurrence: ES)
  Receive Date: 20130722
  Receipt Date: 20130722
  Transmission Date: 20140515
  Serious: Yes (Death, Hospitalization)
  Sender: FDA-Public Use
  Company Number: ES-TEVA-420213USA

PATIENT
  Age: 70 Year
  Sex: Female

DRUGS (9)
  1. BENDAMUSTINE [Suspect]
     Indication: NON-HODGKIN^S LYMPHOMA
     Dosage: UID/QD
     Route: 042
     Dates: start: 20120910, end: 20120911
  2. ARA-C [Suspect]
     Indication: NON-HODGKIN^S LYMPHOMA
  3. VP-16 [Suspect]
     Indication: NON-HODGKIN^S LYMPHOMA
  4. MELPHALAN [Suspect]
     Indication: NON-HODGKIN^S LYMPHOMA
  5. RANITIDINE [Concomitant]
     Indication: NAUSEA
     Dosage: 300 MILLIGRAM DAILY;
     Route: 048
     Dates: start: 20121015
  6. ACICLOVIR [Concomitant]
     Indication: PROPHYLAXIS
     Dosage: 1600 MILLIGRAM DAILY;
     Route: 048
     Dates: start: 20121022
  7. PAROXETINE [Concomitant]
     Indication: DEPRESSION
     Dosage: 20 MILLIGRAM DAILY;
     Route: 048
     Dates: start: 20121022
  8. PRIMPERAN [Concomitant]
     Indication: NAUSEA
     Route: 048
     Dates: start: 20121015
  9. SEPTRIN [Concomitant]
     Indication: PROPHYLAXIS
     Dosage: 1-3 TIMES PER WEEK
     Route: 048
     Dates: start: 20121022

REACTIONS (2)
  - Wernicke^s encephalopathy [Fatal]
  - General physical health deterioration [Unknown]
